FAERS Safety Report 9143408 (Version 1)
Quarter: 2013Q1

REPORT INFORMATION
  Report Type: Spontaneous
  Country: US (occurrence: US)
  Receive Date: 20130306
  Receipt Date: 20130306
  Transmission Date: 20140127
  Serious: No
  Sender: FDA-Public Use
  Company Number: US-ENDO PHARMACEUTICALS INC.-OPER20120406

PATIENT
  Sex: Female
  Weight: 108.96 kg

DRUGS (2)
  1. OPANA ER [Suspect]
     Indication: NERVE INJURY
     Route: 048
     Dates: start: 201112, end: 20120315
  2. OPANA ER [Suspect]
     Route: 048
     Dates: start: 201112, end: 20120315

REACTIONS (1)
  - No adverse event [Unknown]
